FAERS Safety Report 23815366 (Version 3)
Quarter: 2024Q2

REPORT INFORMATION
  Report Type: Spontaneous
  Country: US (occurrence: None)
  Receive Date: 20240503
  Receipt Date: 20240530
  Transmission Date: 20240716
  Serious: Yes (Life-Threatening, Hospitalization, Other)
  Sender: FDA-Public Use
  Company Number: 2024A102570

PATIENT
  Age: 24892 Day
  Sex: Female
  Weight: 74.4 kg

DRUGS (1)
  1. TEZEPELUMAB-EKKO [Suspect]
     Active Substance: TEZEPELUMAB-EKKO
     Indication: Asthma
     Route: 058
     Dates: start: 20240424, end: 20240424

REACTIONS (5)
  - Eye swelling [Unknown]
  - Swelling [Unknown]
  - Anaphylactic reaction [Unknown]
  - Localised oedema [Unknown]
  - Dyspnoea [Unknown]

NARRATIVE: CASE EVENT DATE: 20240424
